FAERS Safety Report 14285812 (Version 3)
Quarter: 2018Q1

REPORT INFORMATION
  Report Type: Spontaneous
  Country: US (occurrence: US)
  Receive Date: 20171214
  Receipt Date: 20180326
  Transmission Date: 20180509
  Serious: No
  Sender: FDA-Public Use
  Company Number: US-PFIZER INC-2017531388

PATIENT
  Age: 73 Year
  Sex: Female

DRUGS (3)
  1. IBRANCE [Suspect]
     Active Substance: PALBOCICLIB
     Indication: BREAST CANCER METASTATIC
     Dosage: UNK
  2. IBRANCE [Suspect]
     Active Substance: PALBOCICLIB
     Dosage: 125 MG, CYCLIC [ONCE A DAY FOR 21 DAYS ON 7 DAYS OFF]
     Dates: start: 201711
  3. LETROZOLE. [Concomitant]
     Active Substance: LETROZOLE
     Dosage: 25 MG, 1X/DAY
     Dates: start: 201711

REACTIONS (4)
  - Pruritus [Recovering/Resolving]
  - Arthralgia [Unknown]
  - Visual impairment [Unknown]
  - Headache [Unknown]

NARRATIVE: CASE EVENT DATE: 2017
